FAERS Safety Report 9742111 (Version 1)
Quarter: 2013Q4

REPORT INFORMATION
  Report Type: Spontaneous
  Country: US (occurrence: US)
  Receive Date: 20131210
  Receipt Date: 20131210
  Transmission Date: 20140711
  Serious: No
  Sender: FDA-Public Use
  Company Number: US-ENDO PHARMACEUTICALS INC.-CARI20130006

PATIENT
  Sex: Female

DRUGS (2)
  1. CARISOPRODOL TABLETS 350MG [Suspect]
     Indication: MUSCLE SPASMS
     Dosage: 350MG
     Route: 048
     Dates: start: 2012
  2. VICODIN [Concomitant]
     Indication: PRODUCT USED FOR UNKNOWN INDICATION
     Dosage: UNK
     Route: 065

REACTIONS (1)
  - Drug effect decreased [Not Recovered/Not Resolved]
